FAERS Safety Report 10500735 (Version 1)
Quarter: 2014Q4

REPORT INFORMATION
  Report Type: Spontaneous
  Country: US (occurrence: US)
  Receive Date: 20141007
  Receipt Date: 20141007
  Transmission Date: 20150528
  Serious: Yes (Other)
  Sender: FDA-Public Use
  Company Number: US-JNJCP-30000243125

PATIENT
  Sex: Female

DRUGS (3)
  1. AVEENO POSITIVELY AGELESS RESURFACING SCRUB [Suspect]
     Active Substance: COSMETICS
     Indication: PRODUCT USED FOR UNKNOWN INDICATION
     Route: 061
  2. AVEENO ACTIVE NATURALS POSITIVELY RADIANT DAILY MOISTURIZER SPF 15 [Suspect]
     Active Substance: AVOBENZONE\OCTINOXATE\OCTISALATE
     Indication: PRODUCT USED FOR UNKNOWN INDICATION
     Route: 061
  3. AVEENO SKIN RELIEF HAND CREAM [Suspect]
     Active Substance: COSMETICS
     Indication: PRODUCT USED FOR UNKNOWN INDICATION
     Route: 061

REACTIONS (1)
  - Metal poisoning [Unknown]
